FAERS Safety Report 11801234 (Version 2)
Quarter: 2015Q4

REPORT INFORMATION
  Report Type: Spontaneous
  Country: US (occurrence: US)
  Receive Date: 20151204
  Receipt Date: 20151214
  Transmission Date: 20160305
  Serious: No
  Sender: FDA-Public Use
  Company Number: US-PFIZER INC-2015396252

PATIENT
  Age: 74 Year
  Sex: Male
  Weight: 97.52 kg

DRUGS (1)
  1. XALKORI [Suspect]
     Active Substance: CRIZOTINIB
     Indication: LUNG NEOPLASM MALIGNANT
     Dosage: 250 MG, ONE IN THE MORNING AND ONE IN THE EVENING
     Route: 048
     Dates: start: 2013, end: 20151114

REACTIONS (4)
  - Fatigue [Unknown]
  - Rib fracture [Unknown]
  - Fall [Unknown]
  - Asthenia [Not Recovered/Not Resolved]
